FAERS Safety Report 17187427 (Version 1)
Quarter: 2019Q4

REPORT INFORMATION
  Report Type: Report from Study
  Country: US (occurrence: US)
  Receive Date: 20191220
  Receipt Date: 20191220
  Transmission Date: 20200122
  Serious: No
  Sender: FDA-Public Use
  Company Number: NVSC2019US022495

PATIENT
  Sex: Female

DRUGS (1)
  1. GILENYA [Suspect]
     Active Substance: FINGOLIMOD HYDROCHLORIDE
     Indication: MULTIPLE SCLEROSIS
     Dosage: 0.5 MG, QD
     Route: 048
     Dates: start: 20191029

REACTIONS (6)
  - Dehydration [Unknown]
  - Paraesthesia [Unknown]
  - Bladder disorder [Unknown]
  - Tremor [Unknown]
  - Blood pressure increased [Unknown]
  - Dizziness [Unknown]
